FAERS Safety Report 5870778-9 (Version None)
Quarter: 2008Q3

REPORT INFORMATION
  Report Type: 
  Country: None (occurrence: None)
  Receive Date: 20080904
  Receipt Date: 20080821
  Transmission Date: 20090109
  Serious: Yes (Hospitalization, Other)
  Sender: FDA-Public Use
  Company Number: CL-ELI_LILLY_AND_COMPANY-CL200808004823

PATIENT
  Age: 50 Year
  Sex: Male

DRUGS (4)
  1. CYMBALTA [Suspect]
     Indication: NEUROPATHY PERIPHERAL
     Dosage: 60 MG, DAILY (1/D)
     Route: 048
     Dates: start: 20080601
  2. GLIBENCLAMIDE [Concomitant]
     Indication: TYPE 2 DIABETES MELLITUS
     Dosage: UNK, UNKNOWN
     Route: 065
  3. METFORMIN HCL [Concomitant]
     Indication: TYPE 2 DIABETES MELLITUS
     Dosage: 850 MG, 2/D
     Route: 048
  4. PREGABALIN [Concomitant]
     Indication: NEUROPATHY PERIPHERAL
     Dosage: UNK, UNKNOWN
     Route: 065
     Dates: start: 20080601

REACTIONS (2)
  - DRUG INTERACTION [None]
  - HEPATIC HAEMORRHAGE [None]
